FAERS Safety Report 9940974 (Version 1)
Quarter: 2014Q1

REPORT INFORMATION
  Report Type: Spontaneous
  Country: DE (occurrence: DE)
  Receive Date: 20140303
  Receipt Date: 20140303
  Transmission Date: 20141002
  Serious: Yes (Life-Threatening, Hospitalization, Disabling, Congenital Anomaly)
  Sender: FDA-Public Use
  Company Number: DE-WATSON-2014-03168

PATIENT
  Sex: Female
  Weight: 2.3 kg

DRUGS (2)
  1. CITALOPRAM (UNKNOWN) [Suspect]
     Indication: FOETAL EXPOSURE DURING PREGNANCY
     Dosage: UNK
     Route: 064
  2. INSULIN [Concomitant]
     Indication: FOETAL EXPOSURE DURING PREGNANCY
     Dosage: UNK

REACTIONS (6)
  - Atrial septal defect [Not Recovered/Not Resolved]
  - Ebstein^s anomaly [Not Recovered/Not Resolved]
  - Pulmonary valve stenosis congenital [Not Recovered/Not Resolved]
  - Transposition of the great vessels [Not Recovered/Not Resolved]
  - Tricuspid valve disease [Not Recovered/Not Resolved]
  - Exposure during pregnancy [Not Recovered/Not Resolved]
